FAERS Safety Report 5726625-9 (Version None)
Quarter: 2008Q2

REPORT INFORMATION
  Report Type: 
  Country: None (occurrence: None)
  Receive Date: 20080502
  Receipt Date: 20080424
  Transmission Date: 20081010
  Serious: Yes (Other)
  Sender: FDA-Public Use
  Company Number: US-JNJFOC-20080407057

PATIENT
  Sex: Female
  Weight: 54.43 kg

DRUGS (2)
  1. TOPAMAX [Suspect]
     Dosage: 25 MG AM AND 50 MG PM
     Route: 048
  2. TOPAMAX [Suspect]
     Indication: MIGRAINE PROPHYLAXIS
     Route: 048

REACTIONS (2)
  - ALOPECIA [None]
  - FACIAL PALSY [None]
